FAERS Safety Report 13941372 (Version 1)
Quarter: 2017Q3

REPORT INFORMATION
  Report Type: Spontaneous
  Country: DE (occurrence: DE)
  Receive Date: 20170906
  Receipt Date: 20170906
  Transmission Date: 20171127
  Serious: Yes (Hospitalization)
  Sender: FDA-Public Use
  Company Number: DE-TEVA-801972GER

PATIENT
  Age: 20 Year
  Sex: Female

DRUGS (1)
  1. COPAXONE [Suspect]
     Active Substance: GLATIRAMER ACETATE
     Dosage: 20 MILLIGRAM DAILY;
     Dates: start: 20170807

REACTIONS (4)
  - Paraesthesia [Unknown]
  - Rash [Unknown]
  - Formication [Unknown]
  - Muscle spasms [Unknown]

NARRATIVE: CASE EVENT DATE: 201708
